FAERS Safety Report 12556211 (Version 1)
Quarter: 2016Q3

REPORT INFORMATION
  Report Type: Spontaneous
  Country: FR (occurrence: FR)
  Receive Date: 20160714
  Receipt Date: 20160714
  Transmission Date: 20161109
  Serious: Yes (Hospitalization)
  Sender: FDA-Public Use
  Company Number: FR-PFIZER INC-2016331402

PATIENT
  Age: 52 Year
  Sex: Female

DRUGS (3)
  1. SALAZOPYRINE [Suspect]
     Active Substance: SULFASALAZINE
     Dosage: 4 DF, DAILY
     Route: 048
     Dates: end: 20160503
  2. LEVOTHYROX [Concomitant]
     Active Substance: LEVOTHYROXINE
  3. SALAZOPYRINE [Suspect]
     Active Substance: SULFASALAZINE
     Indication: RHEUMATOID ARTHRITIS
     Dosage: PROGRESSIVE DOSE INCREASE
     Route: 048
     Dates: start: 201603

REACTIONS (2)
  - Face oedema [Unknown]
  - Angioedema [Unknown]

NARRATIVE: CASE EVENT DATE: 20160503
